FAERS Safety Report 24668414 (Version 1)
Quarter: 2024Q4

REPORT INFORMATION
  Report Type: Spontaneous
  Country: US (occurrence: US)
  Receive Date: 20241127
  Receipt Date: 20241127
  Transmission Date: 20250115
  Serious: No
  Sender: HIKMA
  Company Number: US-HIKMA PHARMACEUTICALS USA INC.-US-H14001-24-08679

PATIENT
  Sex: Male

DRUGS (1)
  1. IPRATROPIUM BROMIDE [Suspect]
     Active Substance: IPRATROPIUM BROMIDE
     Indication: Sinusitis
     Dosage: TWO SPRAYS IN EACH NOSTRIL THREE TIMES DAILY
     Route: 045

REACTIONS (4)
  - Sinusitis [Unknown]
  - Throat irritation [Unknown]
  - Condition aggravated [Unknown]
  - Product dose omission issue [Unknown]
